FAERS Safety Report 5227074-2 (Version None)
Quarter: 2007Q1

REPORT INFORMATION
  Report Type: 
  Country: None (occurrence: None)
  Receive Date: 20070130
  Receipt Date: 20070127
  Transmission Date: 20070707
  Serious: Yes (Hospitalization)
  Sender: FDA-Public Use
  Company Number: 230408

PATIENT
  Age: 64 Year
  Sex: Female

DRUGS (11)
  1. RITUXAN [Suspect]
     Indication: DIFFUSE LARGE B-CELL LYMPHOMA
     Dosage: 515 MG, QD, INTRAVENOUS
     Route: 042
     Dates: start: 20060517, end: 20060605
  2. ONCOVIN [Suspect]
     Indication: DIFFUSE LARGE B-CELL LYMPHOMA
     Dosage: 1.9 MG, INTRAVENOUS
     Route: 042
     Dates: start: 20060518, end: 20060606
  3. DOXORUBICIN HCL [Suspect]
     Indication: DIFFUSE LARGE B-CELL LYMPHOMA
     Dosage: 68 MG, INTRAVENOUS
     Route: 042
     Dates: start: 20060518, end: 20060606
  4. CYCLOPHOSPHAMIDE [Suspect]
     Indication: DIFFUSE LARGE B-CELL LYMPHOMA
     Dosage: 1030 MG, INTRAVENOUS
     Route: 042
     Dates: start: 20060518, end: 20060606
  5. PREDNISONE TAB [Suspect]
     Indication: DIFFUSE LARGE B-CELL LYMPHOMA
     Dosage: 100 MG, ORAL
     Route: 048
     Dates: start: 20060518, end: 20060606
  6. CALONAL (ACETAMINOPHEN) [Concomitant]
  7. POLARAMINE [Concomitant]
  8. ZANTAC [Concomitant]
  9. BIO-THREE (CLOSTRIDIUM BUTYRICUM) [Concomitant]
  10. FUNGIZONE [Concomitant]
  11. BAKTAR (SULFAMETHOXAZOLE, TRIMETHOPRIM) [Concomitant]

REACTIONS (9)
  - C-REACTIVE PROTEIN INCREASED [None]
  - DEMYELINATION [None]
  - DYSSTASIA [None]
  - HAEMOGLOBIN DECREASED [None]
  - MUSCULAR WEAKNESS [None]
  - NERVE CONDUCTION STUDIES ABNORMAL [None]
  - PYREXIA [None]
  - UPPER RESPIRATORY TRACT INFLAMMATION [None]
  - WHITE BLOOD CELL COUNT INCREASED [None]
